FAERS Safety Report 8760664 (Version 2)
Quarter: 2012Q4

REPORT INFORMATION
  Report Type: 
  Country: JP (occurrence: JP)
  Receive Date: 20120830
  Receipt Date: 20121012
  Transmission Date: 20130627
  Serious: Yes (Other)
  Sender: FDA-Public Use
  Company Number: JP-SANOFI-AVENTIS-2012SA060799

PATIENT
  Age: 69 Year
  Sex: Female
  Weight: 43 kg

DRUGS (13)
  1. ELPLAT [Suspect]
     Indication: COLON CANCER
     Route: 041
     Dates: start: 20120709, end: 20120709
  2. ELPLAT [Suspect]
     Indication: COLON CANCER
     Route: 041
     Dates: start: 20120801, end: 20120801
  3. XELODA [Concomitant]
     Indication: COLON CANCER
     Route: 048
     Dates: start: 20120709
  4. XELODA [Concomitant]
     Indication: COLON CANCER
     Route: 048
     Dates: start: 20120801
  5. AVASTIN [Concomitant]
     Indication: COLON CANCER
     Route: 041
     Dates: start: 20120709, end: 20120709
  6. AVASTIN [Concomitant]
     Indication: COLON CANCER
     Route: 041
     Dates: start: 20120801, end: 20120801
  7. ALOXI [Concomitant]
     Dates: start: 20120709, end: 20120801
  8. EMEND [Concomitant]
     Dates: start: 20120709, end: 20120711
  9. SELBEX [Concomitant]
     Dates: start: 20120709
  10. MYSLEE [Concomitant]
     Dates: start: 20120709
  11. PYDOXAL [Concomitant]
     Dates: start: 20120709
  12. AMLODIPINE BESILATE [Concomitant]
     Dates: start: 20120709
  13. LOXONIN [Concomitant]
     Dates: start: 20120709

REACTIONS (3)
  - Grip strength decreased [Recovered/Resolved]
  - Dysphonia [Recovered/Resolved]
  - Dyspnoea [Unknown]
